FAERS Safety Report 5399494-7 (Version None)
Quarter: 2007Q3

REPORT INFORMATION
  Report Type: 
  Country: None (occurrence: None)
  Receive Date: 20070727
  Receipt Date: 20070717
  Transmission Date: 20080115
  Serious: Yes (Hospitalization)
  Sender: FDA-Public Use
  Company Number: FR-PFIZER INC-2006083579

PATIENT
  Sex: Male

DRUGS (10)
  1. SU-011,248 [Suspect]
     Indication: METASTATIC RENAL CELL CARCINOMA
     Route: 048
     Dates: start: 20060419, end: 20060507
  2. SU-011,248 [Suspect]
     Route: 048
     Dates: start: 20060606, end: 20060702
  3. SU-011,248 [Suspect]
     Route: 048
     Dates: start: 20060511, end: 20060516
  4. SOLU-MEDROL [Suspect]
     Indication: DRUG USE FOR UNKNOWN INDICATION
     Dosage: DAILY DOSE:120MG-FREQ:DAILY
     Dates: start: 20060101, end: 20060101
  5. GLICLAZIDE [Concomitant]
     Route: 048
     Dates: end: 20060702
  6. BIPRETERAX [Concomitant]
     Route: 048
     Dates: start: 20010101
  7. AMLODIPINE [Concomitant]
     Route: 048
     Dates: start: 20010101
  8. GLUCOPHAGE [Concomitant]
     Route: 048
  9. DIAMICRON [Concomitant]
     Route: 048
     Dates: end: 20060702
  10. KARDEGIC [Concomitant]
     Route: 048
     Dates: start: 20010101

REACTIONS (5)
  - CONFUSIONAL STATE [None]
  - DIABETES MELLITUS INADEQUATE CONTROL [None]
  - DYSPNOEA [None]
  - GENERAL PHYSICAL HEALTH DETERIORATION [None]
  - VOMITING [None]
